FAERS Safety Report 17213496 (Version 1)
Quarter: 2019Q4

REPORT INFORMATION
  Report Type: Spontaneous
  Country: US (occurrence: US)
  Receive Date: 20191230
  Receipt Date: 20191230
  Transmission Date: 20200122
  Serious: No
  Sender: FDA-Public Use
  Company Number: US-JNJFOC-20191231956

PATIENT
  Age: 16 Year
  Sex: Male
  Weight: 59.02 kg

DRUGS (5)
  1. CLONIDINE                          /00171102/ [Concomitant]
     Active Substance: CLONIDINE
     Route: 065
  2. ZYRTEC [Concomitant]
     Active Substance: CETIRIZINE HYDROCHLORIDE
     Route: 065
  3. CLONIDINE                          /00171102/ [Concomitant]
     Active Substance: CLONIDINE
     Dosage: NIGHTLY
     Route: 065
  4. CONCERTA [Suspect]
     Active Substance: METHYLPHENIDATE HYDROCHLORIDE
     Route: 048
  5. CONCERTA [Suspect]
     Active Substance: METHYLPHENIDATE HYDROCHLORIDE
     Indication: ATTENTION DEFICIT/HYPERACTIVITY DISORDER
     Route: 048

REACTIONS (3)
  - Psychomotor hyperactivity [Not Recovered/Not Resolved]
  - Therapeutic product effect decreased [Unknown]
  - Agitation [Not Recovered/Not Resolved]

NARRATIVE: CASE EVENT DATE: 20191215
